FAERS Safety Report 18306582 (Version 2)
Quarter: 2020Q4

REPORT INFORMATION
  Report Type: Spontaneous
  Country: CA (occurrence: CA)
  Receive Date: 20200924
  Receipt Date: 20201226
  Transmission Date: 20210113
  Serious: Yes (Other)
  Sender: FDA-Public Use
  Company Number: CA-CELLTRION INC.-2017CA016417

PATIENT

DRUGS (30)
  1. INFLECTRA [Suspect]
     Active Substance: INFLIXIMAB-DYYB
     Dosage: 800 MG (5MG/KG), EVERY 8 WEEKS
     Route: 042
     Dates: start: 20190213
  2. INFLECTRA [Suspect]
     Active Substance: INFLIXIMAB-DYYB
     Dosage: 800 MG (5MG/KG), EVERY 8 WEEKS
     Route: 042
     Dates: start: 20190729
  3. INFLECTRA [Suspect]
     Active Substance: INFLIXIMAB-DYYB
     Dosage: 840 MG, EVERY 8 WEEKS
     Route: 042
     Dates: start: 20190924
  4. INFLECTRA [Suspect]
     Active Substance: INFLIXIMAB-DYYB
     Dosage: 840 MG, EVERY 8 WEEKS
     Route: 042
     Dates: start: 20191119
  5. ELTROXIN [Concomitant]
     Active Substance: LEVOTHYROXINE
     Dosage: UNK
     Route: 065
  6. NAPROXEN. [Concomitant]
     Active Substance: NAPROXEN
     Dosage: 500 MG, 2X/DAY
     Route: 065
  7. INFLECTRA [Suspect]
     Active Substance: INFLIXIMAB-DYYB
     Indication: PSORIATIC ARTHROPATHY
     Dosage: 800 MG, EVERY 8 WEEKS
     Route: 042
     Dates: start: 20161116
  8. INFLECTRA [Suspect]
     Active Substance: INFLIXIMAB-DYYB
     Dosage: 835 MG, AT 0, 2, 6 WEEKS, THEN EVERY 8 WEEKS
     Route: 042
     Dates: start: 20161116, end: 20170803
  9. INFLECTRA [Suspect]
     Active Substance: INFLIXIMAB-DYYB
     Dosage: 800 MG, EVERY 8 WEEKS
     Route: 042
     Dates: start: 20180510, end: 20180510
  10. INFLECTRA [Suspect]
     Active Substance: INFLIXIMAB-DYYB
     Dosage: 840 MG, EVERY 8 WEEKS
     Route: 042
     Dates: start: 20201217
  11. INFLECTRA [Suspect]
     Active Substance: INFLIXIMAB-DYYB
     Dosage: 840 MG, EVERY 8 WEEKS
     Route: 042
     Dates: start: 20201022
  12. INFLECTRA [Suspect]
     Active Substance: INFLIXIMAB-DYYB
     Dosage: 800 MG, EVERY 8 WEEKS
     Route: 042
     Dates: start: 20180830
  13. INFLECTRA [Suspect]
     Active Substance: INFLIXIMAB-DYYB
     Dosage: 800 MG (5MG/KG), EVERY 8 WEEKS
     Route: 042
     Dates: start: 20181220
  14. INFLECTRA [Suspect]
     Active Substance: INFLIXIMAB-DYYB
     Dosage: 840 MG, EVERY 8 WEEKS
     Route: 042
     Dates: start: 20201022
  15. INFLECTRA [Suspect]
     Active Substance: INFLIXIMAB-DYYB
     Dosage: 835 MG, AT 0, 2, 6 WEEKS, THEN EVERY 8 WEEKS
     Route: 042
     Dates: start: 20170928, end: 20180830
  16. INFLECTRA [Suspect]
     Active Substance: INFLIXIMAB-DYYB
     Dosage: 800 MG, EVERY 8 WEEKS
     Route: 042
     Dates: start: 20180315, end: 20180315
  17. INFLECTRA [Suspect]
     Active Substance: INFLIXIMAB-DYYB
     Dosage: 5 MG/KG, EVERY 8 WEEKS
     Route: 042
     Dates: start: 20190604
  18. INFLECTRA [Suspect]
     Active Substance: INFLIXIMAB-DYYB
     Dosage: 840 MG, EVERY 8 WEEKS
     Route: 042
     Dates: start: 20200114
  19. INFLECTRA [Suspect]
     Active Substance: INFLIXIMAB-DYYB
     Dosage: 840 MG, EVERY 8 WEEKS
     Route: 042
     Dates: start: 20200827, end: 20200827
  20. INFLECTRA [Suspect]
     Active Substance: INFLIXIMAB-DYYB
     Dosage: 840 MG, EVERY 8 WEEKS
     Route: 042
     Dates: start: 20201022
  21. INFLECTRA [Suspect]
     Active Substance: INFLIXIMAB-DYYB
     Dosage: 840 MG, EVERY 8 WEEKS
     Route: 042
     Dates: start: 20201217, end: 20201217
  22. SULFASALAZINE. [Concomitant]
     Active Substance: SULFASALAZINE
     Indication: PSORIATIC ARTHROPATHY
     Dosage: 500 MG, 2X/DAY
     Route: 065
  23. INFLECTRA [Suspect]
     Active Substance: INFLIXIMAB-DYYB
     Dosage: 800 MG, EVERY 8 WEEKS
     Route: 042
     Dates: start: 20180118
  24. INFLECTRA [Suspect]
     Active Substance: INFLIXIMAB-DYYB
     Dosage: 800 MG (5MG/KG), EVERY 8 WEEKS
     Route: 042
     Dates: start: 20190604
  25. INFLECTRA [Suspect]
     Active Substance: INFLIXIMAB-DYYB
     Dosage: 840 MG, EVERY 8 WEEKS
     Route: 042
     Dates: start: 20200310
  26. INFLECTRA [Suspect]
     Active Substance: INFLIXIMAB-DYYB
     Dosage: 5 MG/KG (800 MG) EVERY 8 WEEKS
     Route: 042
     Dates: start: 20170928, end: 20180830
  27. INFLECTRA [Suspect]
     Active Substance: INFLIXIMAB-DYYB
     Dosage: 840 MG, EVERY 8 WEEKS
     Route: 042
     Dates: start: 20201022
  28. METHOTREXATE. [Concomitant]
     Active Substance: METHOTREXATE
     Indication: PSORIATIC ARTHROPATHY
     Dosage: UNK UNK, WEEKLY
     Route: 065
  29. INFLECTRA [Suspect]
     Active Substance: INFLIXIMAB-DYYB
     Dosage: 800 MG (5MG/KG), EVERY 8 WEEKS
     Route: 042
     Dates: start: 20181025
  30. INFLECTRA [Suspect]
     Active Substance: INFLIXIMAB-DYYB
     Dosage: 800 MG (5MG/KG), EVERY 8 WEEKS
     Route: 042
     Dates: start: 20190409

REACTIONS (10)
  - Heart rate decreased [Unknown]
  - Blood pressure increased [Unknown]
  - Heart rate irregular [Unknown]
  - Incorrect dose administered [Unknown]
  - Off label use [Unknown]
  - Intentional product use issue [Unknown]
  - Blood pressure diastolic decreased [Unknown]
  - Off label use [Unknown]
  - Pneumonia [Recovering/Resolving]
  - Weight increased [Recovered/Resolved]

NARRATIVE: CASE EVENT DATE: 2017
